FAERS Safety Report 10695746 (Version 1)
Quarter: 2015Q1

REPORT INFORMATION
  Report Type: Spontaneous
  Country: US (occurrence: None)
  Receive Date: 20150106
  Receipt Date: 20150106
  Transmission Date: 20150721
  Serious: No
  Sender: FDA-Public Use
  Company Number: None

PATIENT
  Age: 57 Year
  Sex: Male

DRUGS (1)
  1. FLUROX [Suspect]
     Active Substance: BENOXINATE HYDROCHLORIDE\FLUORESCEIN SODIUM
     Indication: INTRAOCULAR PRESSURE TEST
     Dosage: DATES OF USE: 1 DROP OU DURING EXAM, 1 DROP DURING EYE EXAM, DIAGNOSTIC USE,  OPHTHALMIC?
     Route: 047

REACTIONS (7)
  - Vision blurred [None]
  - Product substitution issue [None]
  - Pain [None]
  - Photophobia [None]
  - Corneal exfoliation [None]
  - Product quality issue [None]
  - No reaction on previous exposure to drug [None]

NARRATIVE: CASE EVENT DATE: 20140616
